FAERS Safety Report 11909554 (Version 2)
Quarter: 2016Q1

REPORT INFORMATION
  Report Type: Spontaneous
  Country: US (occurrence: US)
  Receive Date: 20160112
  Receipt Date: 20160128
  Transmission Date: 20160526
  Serious: Yes (Other)
  Sender: FDA-Public Use
  Company Number: US-TESARO INC.-TS50-00002-2015USA

PATIENT
  Age: 65 Year
  Sex: Female

DRUGS (2)
  1. VARUBI [Suspect]
     Active Substance: ROLAPITANT
     Indication: VOMITING
     Route: 048
     Dates: start: 20151223, end: 20151223
  2. VARUBI [Suspect]
     Active Substance: ROLAPITANT
     Indication: NAUSEA

REACTIONS (8)
  - Stomatitis [Unknown]
  - Dyspnoea [Unknown]
  - Ear pain [Unknown]
  - Abdominal pain upper [Unknown]
  - Blood glucose increased [Unknown]
  - Headache [Unknown]
  - Oropharyngeal pain [Unknown]
  - Hypokalaemia [Unknown]

NARRATIVE: CASE EVENT DATE: 201512
